FAERS Safety Report 7795125-7 (Version None)
Quarter: 2011Q4

REPORT INFORMATION
  Report Type: 
  Country: None (occurrence: None)
  Receive Date: 20111004
  Receipt Date: 20110921
  Transmission Date: 20120403
  Serious: Yes (Other)
  Sender: FDA-Public Use
  Company Number: DE-CELGENEUS-062-50794-11092480

PATIENT
  Age: 77 Year
  Sex: Male
  Weight: 80 kg

DRUGS (9)
  1. VIDAZA [Suspect]
     Route: 065
     Dates: start: 20110627, end: 20110701
  2. TAZOBAC [Suspect]
     Indication: INFECTION PROPHYLAXIS
     Route: 041
     Dates: start: 20110915, end: 20110916
  3. CYTARABINE [Suspect]
     Route: 065
     Dates: start: 20110914, end: 20110916
  4. ETOPOSIDE [Suspect]
     Route: 065
  5. LEVOFLOXACIN [Concomitant]
     Indication: INFECTION PROPHYLAXIS
     Route: 041
     Dates: start: 20110101, end: 20110916
  6. LENOGRASTIM [Suspect]
     Route: 065
     Dates: start: 20110323, end: 20110101
  7. PIPERACILLIN [Suspect]
     Indication: INFECTION PROPHYLAXIS
     Dosage: 12 GRAM
     Route: 041
     Dates: start: 20110915, end: 20110916
  8. VIDAZA [Suspect]
     Route: 065
     Dates: start: 20110528, end: 20110601
  9. IDARUBICIN HCL [Suspect]
     Route: 065

REACTIONS (1)
  - CHILLS [None]
